FAERS Safety Report 10099959 (Version 1)
Quarter: 2014Q2

REPORT INFORMATION
  Report Type: Spontaneous
  Country: US (occurrence: US)
  Receive Date: 20140423
  Receipt Date: 20140423
  Transmission Date: 20141212
  Serious: No
  Sender: FDA-Public Use
  Company Number: US-PFIZER INC-2014109687

PATIENT
  Age: 71 Year
  Sex: Male
  Weight: 111 kg

DRUGS (2)
  1. ADVIL [Suspect]
     Indication: ARTHRALGIA
     Dosage: 2 PILLS (REPORTED AS BY TAKING 2 PILLS EACH TOGETHER), AS NEEDED IN THE MORNING
     Dates: start: 2014, end: 20140416
  2. TYLENOL [Suspect]
     Dosage: UNK

REACTIONS (1)
  - Drug ineffective [Recovered/Resolved]
